FAERS Safety Report 15044598 (Version 2)
Quarter: 2018Q3

REPORT INFORMATION
  Report Type: Spontaneous
  Country: CN (occurrence: CN)
  Receive Date: 20180621
  Receipt Date: 20180706
  Transmission Date: 20181010
  Serious: Yes (Death, Life-Threatening)
  Sender: FDA-Public Use
  Company Number: CN-ASTRAZENECA-2018SE79046

PATIENT
  Age: 65 Year
  Sex: Male

DRUGS (10)
  1. BRILINTA [Suspect]
     Active Substance: TICAGRELOR
     Route: 048
  2. BETALOC ZOK [Suspect]
     Active Substance: METOPROLOL SUCCINATE
     Route: 048
  3. BAYASPIRIN [Concomitant]
     Active Substance: ASPIRIN
     Dosage: 100 MG, WITH THE INITIAL DOSE OF 300 MG
  4. PIPERACILLIN [Concomitant]
     Active Substance: PIPERACILLIN
  5. TIROFIBAN [Concomitant]
     Active Substance: TIROFIBAN
  6. NIFEDIPINE. [Concomitant]
     Active Substance: NIFEDIPINE
  7. CANDESARTAN. [Concomitant]
     Active Substance: CANDESARTAN
  8. CHINESE TRADITIONAL MEDICINE NOS [Concomitant]
     Active Substance: UNSPECIFIED INGREDIENT
  9. SULBACTAM SODIUM [Concomitant]
     Active Substance: SULBACTAM SODIUM
  10. CRESTOR [Suspect]
     Active Substance: ROSUVASTATIN CALCIUM
     Route: 048

REACTIONS (5)
  - Cerebrovascular accident [Fatal]
  - Hypoxic-ischaemic encephalopathy [Fatal]
  - Cardiogenic shock [Fatal]
  - Arrhythmia [Fatal]
  - Coma [Fatal]
